FAERS Safety Report 21160036 (Version 1)
Quarter: 2022Q3

REPORT INFORMATION
  Report Type: Spontaneous
  Country: US (occurrence: US)
  Receive Date: 20220802
  Receipt Date: 20220802
  Transmission Date: 20221027
  Serious: Yes (Death, Hospitalization)
  Sender: FDA-Public Use
  Company Number: US-BAYER-2022A103951

PATIENT
  Age: 84 Year
  Sex: Male

DRUGS (8)
  1. ADEMPAS [Suspect]
     Active Substance: RIOCIGUAT
  2. LASIX [Concomitant]
     Active Substance: FUROSEMIDE
  3. LEVOTHYROXINE [Concomitant]
     Active Substance: LEVOTHYROXINE
  4. FLOMAX [Concomitant]
     Active Substance: TAMSULOSIN HYDROCHLORIDE
  5. HYDROXYUREA [Concomitant]
     Active Substance: HYDROXYUREA
  6. FINASTERIDE [Concomitant]
     Active Substance: FINASTERIDE
  7. WARFARIN [Concomitant]
     Active Substance: WARFARIN
  8. VITAMIN D3 [Concomitant]
     Active Substance: CHOLECALCIFEROL

REACTIONS (4)
  - Respiratory failure [Fatal]
  - Acute kidney injury [Fatal]
  - Femoral hernia incarcerated [None]
  - Abdominal pain [None]

NARRATIVE: CASE EVENT DATE: 20220614
